FAERS Safety Report 5734998-6 (Version None)
Quarter: 2008Q2

REPORT INFORMATION
  Report Type: 
  Country: None (occurrence: None)
  Receive Date: 20080512
  Receipt Date: 20080429
  Transmission Date: 20081010
  Serious: Yes (Death, Hospitalization, Other)
  Sender: FDA-Public Use
  Company Number: US-BAYER-200811114BCC

PATIENT
  Age: 20 Year
  Sex: Female

DRUGS (1)
  1. ALEVE [Suspect]
     Indication: SYSTEMIC LUPUS ERYTHEMATOSUS
     Dosage: UNIT DOSE: 220 MG
     Route: 048

REACTIONS (4)
  - ANEURYSM [None]
  - COMA [None]
  - DEATH [None]
  - RENAL FAILURE [None]
